FAERS Safety Report 13412112 (Version 2)
Quarter: 2017Q4

REPORT INFORMATION
  Report Type: Spontaneous
  Country: US (occurrence: US)
  Receive Date: 20170406
  Receipt Date: 20171123
  Transmission Date: 20180320
  Serious: No
  Sender: FDA-Public Use
  Company Number: US-JNJFOC-20170316667

PATIENT
  Sex: Male

DRUGS (15)
  1. RISPERDAL [Suspect]
     Active Substance: RISPERIDONE
     Indication: SCHIZOAFFECTIVE DISORDER BIPOLAR TYPE
     Route: 048
     Dates: start: 20091223, end: 20100122
  2. RISPERDAL CONSTA [Suspect]
     Active Substance: RISPERIDONE
     Indication: SCHIZOAFFECTIVE DISORDER BIPOLAR TYPE
     Dosage: VARYING DOSES OF UNSPECIFIED DOSE AND 25 MG
     Route: 030
     Dates: start: 20091225, end: 20100122
  3. RISPERDAL [Suspect]
     Active Substance: RISPERIDONE
     Indication: PARANOIA
     Dosage: VARYING DOSES OF 01 MG AND 02 MG
     Route: 048
     Dates: start: 20060113, end: 20060113
  4. RISPERIDONE. [Suspect]
     Active Substance: RISPERIDONE
     Indication: SCHIZOAFFECTIVE DISORDER BIPOLAR TYPE
     Route: 048
     Dates: start: 20091223
  5. RISPERDAL [Suspect]
     Active Substance: RISPERIDONE
     Indication: HOMICIDAL IDEATION
     Route: 048
     Dates: start: 20051228
  6. RISPERDAL [Suspect]
     Active Substance: RISPERIDONE
     Indication: PARANOIA
     Route: 048
     Dates: start: 20051228
  7. RISPERDAL [Suspect]
     Active Substance: RISPERIDONE
     Indication: PARANOIA
     Route: 048
     Dates: start: 201105
  8. RISPERIDONE. [Suspect]
     Active Substance: RISPERIDONE
     Indication: SCHIZOAFFECTIVE DISORDER BIPOLAR TYPE
     Dosage: VARYING DOSES OF 01 MG AND 02 MG
     Route: 048
     Dates: start: 20051228
  9. RISPERDAL [Suspect]
     Active Substance: RISPERIDONE
     Indication: HOMICIDAL IDEATION
     Route: 048
     Dates: start: 201105
  10. RISPERDAL [Suspect]
     Active Substance: RISPERIDONE
     Indication: HOMICIDAL IDEATION
     Dosage: VARYING DOSES OF 01 MG AND 02 MG
     Route: 048
     Dates: start: 20060113, end: 20060113
  11. RISPERDAL [Suspect]
     Active Substance: RISPERIDONE
     Indication: HOMICIDAL IDEATION
     Route: 048
     Dates: start: 20091223, end: 20100122
  12. RISPERDAL [Suspect]
     Active Substance: RISPERIDONE
     Indication: SCHIZOAFFECTIVE DISORDER BIPOLAR TYPE
     Route: 048
     Dates: start: 20051228
  13. RISPERDAL [Suspect]
     Active Substance: RISPERIDONE
     Indication: SCHIZOAFFECTIVE DISORDER BIPOLAR TYPE
     Route: 048
     Dates: start: 201105
  14. RISPERDAL [Suspect]
     Active Substance: RISPERIDONE
     Indication: SCHIZOAFFECTIVE DISORDER BIPOLAR TYPE
     Dosage: VARYING DOSES OF 01 MG AND 02 MG
     Route: 048
     Dates: start: 20060113, end: 20060113
  15. RISPERDAL [Suspect]
     Active Substance: RISPERIDONE
     Indication: PARANOIA
     Route: 048
     Dates: start: 20091223, end: 20100122

REACTIONS (2)
  - Emotional disorder [Unknown]
  - Gynaecomastia [Unknown]
